FAERS Safety Report 26071506 (Version 1)
Quarter: 2025Q4

REPORT INFORMATION
  Report Type: Spontaneous
  Country: ZA (occurrence: ZA)
  Receive Date: 20251120
  Receipt Date: 20251120
  Transmission Date: 20260118
  Serious: Yes (Other)
  Sender: AMGEN
  Company Number: ZA-AMGEN-ZAFSP2025223359

PATIENT
  Sex: Female

DRUGS (2)
  1. ARANESP [Suspect]
     Active Substance: DARBEPOETIN ALFA
     Indication: Product used for unknown indication
     Dosage: 120 MICROGRAM
     Route: 065
  2. TADALAFIL [Concomitant]
     Active Substance: TADALAFIL
     Dosage: 20 MILLIGRAM, QD
     Route: 065

REACTIONS (7)
  - End stage renal disease [Unknown]
  - Pulmonary hypertension [Unknown]
  - Oxalosis [Unknown]
  - Liver disorder [Unknown]
  - Haemoglobin decreased [Unknown]
  - Primary hyperoxaluria [Unknown]
  - Diastolic dysfunction [Unknown]
